FAERS Safety Report 8024918-6 (Version None)
Quarter: 2012Q1

REPORT INFORMATION
  Report Type: 
  Country: None (occurrence: None)
  Receive Date: 20120105
  Receipt Date: 20111229
  Transmission Date: 20120608
  Serious: Yes (Hospitalization)
  Sender: FDA-Public Use
  Company Number: AT-JNJFOC-20120100498

PATIENT
  Sex: Female

DRUGS (3)
  1. VENLAFAXINE [Concomitant]
     Indication: DEPRESSION
     Dates: start: 20111203, end: 20111206
  2. PALIPERIDONE [Suspect]
     Indication: SCHIZOPHRENIA
     Route: 030
     Dates: start: 20111129
  3. PALIPERIDONE [Suspect]
     Route: 030
     Dates: start: 20111206

REACTIONS (1)
  - PSYCHOTIC DISORDER [None]
